FAERS Safety Report 5802115-X (Version None)
Quarter: 2008Q3

REPORT INFORMATION
  Report Type: 
  Country: None (occurrence: None)
  Receive Date: 20080707
  Receipt Date: 20080703
  Transmission Date: 20090109
  Serious: Yes (Death)
  Sender: FDA-Public Use
  Company Number: PHEH2008US05421

PATIENT
  Sex: Female

DRUGS (1)
  1. DIOVAN [Suspect]
     Dosage: 320 MG/DAY
     Route: 048
     Dates: start: 20060101

REACTIONS (3)
  - ACUTE HEPATIC FAILURE [None]
  - JAUNDICE [None]
  - YELLOW SKIN [None]
